FAERS Safety Report 17598815 (Version 6)
Quarter: 2021Q1

REPORT INFORMATION
  Report Type: Report from Study
  Country: US (occurrence: US)
  Receive Date: 20200330
  Receipt Date: 20210328
  Transmission Date: 20210419
  Serious: Yes (Hospitalization, Disabling, Other)
  Sender: FDA-Public Use
  Company Number: NVSC2020US086349

PATIENT
  Age: 56 Year
  Sex: Male

DRUGS (1)
  1. ENTRESTO [Suspect]
     Active Substance: SACUBITRIL\VALSARTAN
     Indication: CARDIAC FAILURE
     Dosage: 49.51 MG, BID
     Route: 048
     Dates: start: 20180101

REACTIONS (13)
  - Cardiac disorder [Unknown]
  - Anxiety [Not Recovered/Not Resolved]
  - Skin haemorrhage [Recovering/Resolving]
  - Tooth fracture [Not Recovered/Not Resolved]
  - Dyspnoea [Unknown]
  - Fear of disease [Unknown]
  - Sleep disorder [Unknown]
  - Heart valve incompetence [Not Recovered/Not Resolved]
  - Myocardial infarction [Unknown]
  - Retching [Not Recovered/Not Resolved]
  - Precancerous condition [Recovering/Resolving]
  - General physical condition abnormal [Unknown]
  - Illness [Not Recovered/Not Resolved]

NARRATIVE: CASE EVENT DATE: 2018
